FAERS Safety Report 23380843 (Version 1)
Quarter: 2024Q1

REPORT INFORMATION
  Report Type: Spontaneous
  Country: US (occurrence: US)
  Receive Date: 20240109
  Receipt Date: 20240109
  Transmission Date: 20240410
  Serious: No
  Sender: FDA-Public Use
  Company Number: US-AUROBINDO-AUR-APL-2023-036963

PATIENT
  Sex: Female

DRUGS (1)
  1. CLOZAPINE [Suspect]
     Active Substance: CLOZAPINE
     Indication: Product used for unknown indication
     Dosage: 1 TABLET IN THE MORNING AND 3 AT NIGHT BUT FOR THE LAST 2 WEEKS SHE HAD BEEN TAKING 1 TABLET IN THE
     Route: 048

REACTIONS (2)
  - Intentional product use issue [Unknown]
  - Product dispensing issue [Unknown]
